FAERS Safety Report 12199306 (Version 1)
Quarter: 2016Q1

REPORT INFORMATION
  Report Type: Spontaneous
  Country: US (occurrence: None)
  Receive Date: 20160321
  Receipt Date: 20160321
  Transmission Date: 20160526
  Serious: Yes (Hospitalization)
  Sender: FDA-Public Use
  Company Number: None

PATIENT

DRUGS (2)
  1. PREDNISONE 40 MG [Suspect]
     Active Substance: PREDNISONE
     Route: 048
  2. METHYLPREDNISOLONE 60 MG [Suspect]
     Active Substance: METHYLPREDNISOLONE
     Route: 042

REACTIONS (3)
  - Pyrexia [None]
  - Dyspnoea [None]
  - Clostridium test positive [None]

NARRATIVE: CASE EVENT DATE: 20150203
